FAERS Safety Report 7887454 (Version 3)
Quarter: 2013Q4

REPORT INFORMATION
  Report Type: Spontaneous
  Country: US (occurrence: US)
  Receive Date: 20110406
  Receipt Date: 20131213
  Transmission Date: 20140711
  Serious: Yes (Other)
  Sender: FDA-Public Use
  Company Number: US-BAYER-2011-028914

PATIENT
  Age: 32 Year
  Sex: Female

DRUGS (7)
  1. YASMIN [Suspect]
     Indication: PRODUCT USED FOR UNKNOWN INDICATION
     Dosage: UNK
     Dates: start: 200604, end: 200812
  2. OCELLA [Suspect]
     Indication: PRODUCT USED FOR UNKNOWN INDICATION
     Dosage: UNK
     Dates: start: 200604, end: 200812
  3. CEPHALEXIN [Concomitant]
     Dosage: 500 MG, UNK
  4. HYDROCODONE W/APAP [Concomitant]
     Dosage: 7.5-5
     Dates: start: 20081113, end: 20081209
  5. SUCRALFATE [Concomitant]
     Dosage: 1 G, UNK
  6. METHYLIN [Concomitant]
     Dosage: 20 MG, UNK
     Dates: start: 20060821, end: 20090206
  7. BUPROPION [Concomitant]
     Dosage: 150 MG, UNK
     Dates: start: 20080904, end: 20090411

REACTIONS (4)
  - Biliary dyskinesia [None]
  - Pain [None]
  - Intentional self-injury [None]
  - Injury [None]
